FAERS Safety Report 9349478 (Version 5)
Quarter: 2014Q2

REPORT INFORMATION
  Report Type: Spontaneous
  Country: US (occurrence: US)
  Receive Date: 20130614
  Receipt Date: 20140409
  Transmission Date: 20141212
  Serious: Yes (Hospitalization)
  Sender: FDA-Public Use
  Company Number: US-B.I. PHARMACEUTICALS,INC./RIDGEFIELD-2013-BI-16580BP

PATIENT
  Sex: Female
  Weight: 74.84 kg

DRUGS (18)
  1. PRADAXA [Suspect]
     Indication: ANTICOAGULANT THERAPY
     Dosage: 300 MG
     Route: 048
     Dates: start: 20110120, end: 20120809
  2. PRADAXA [Suspect]
     Indication: ATRIAL FIBRILLATION
  3. PRADAXA [Suspect]
     Indication: CEREBROVASCULAR ACCIDENT PROPHYLAXIS
  4. ALBUTEROL [Concomitant]
     Indication: DYSPNOEA
     Route: 065
  5. ATENOLOL [Concomitant]
     Route: 065
     Dates: start: 2003
  6. CALCIUM-VITAMIN D-VITAMIN K [Concomitant]
     Route: 065
  7. CARAFATE [Concomitant]
     Route: 065
  8. ESTRACE [Concomitant]
     Route: 048
  9. FLECAINIDE [Concomitant]
     Indication: ATRIAL FIBRILLATION
     Route: 048
  10. GABAPENTIN [Concomitant]
     Route: 065
  11. LASIX [Concomitant]
     Route: 048
  12. LEVOTHYROXINE [Concomitant]
     Indication: HYPOTHYROIDISM
     Dosage: 25 MCG
     Route: 048
     Dates: start: 2007
  13. PRILOSEC [Concomitant]
     Indication: GASTROOESOPHAGEAL REFLUX DISEASE
     Route: 065
     Dates: start: 2007
  14. VITAMIN D [Concomitant]
     Dosage: 2000 U
     Route: 048
  15. BENADRYL [Concomitant]
     Route: 048
  16. CLARITIN [Concomitant]
     Dosage: 10 MG
     Route: 048
  17. DESYREL [Concomitant]
     Route: 048
  18. EFFEXOR [Concomitant]
     Dosage: 150 MG
     Route: 048

REACTIONS (3)
  - Gastrointestinal haemorrhage [Unknown]
  - Abdominal pain [Unknown]
  - Anaemia [Unknown]
